FAERS Safety Report 16343764 (Version 2)
Quarter: 2019Q2

REPORT INFORMATION
  Report Type: Spontaneous
  Country: US (occurrence: US)
  Receive Date: 20190522
  Receipt Date: 20190524
  Transmission Date: 20190711
  Serious: No
  Sender: FDA-Public Use
  Company Number: US-PFIZER INC-2017337330

PATIENT
  Age: 53 Year
  Sex: Female

DRUGS (9)
  1. ACYCLOVIR [ACICLOVIR] [Concomitant]
     Active Substance: ACYCLOVIR
     Dosage: 200 MG, UNK
     Route: 048
  2. CELEBREX [Suspect]
     Active Substance: CELECOXIB
     Indication: RAYNAUD^S PHENOMENON
     Dosage: 200 MG, DAILY
     Route: 048
     Dates: start: 20080129
  3. ANGELIQ [Concomitant]
     Active Substance: DROSPIRENONE\ESTRADIOL
     Dosage: 0.5 DF, DAILY
     Route: 048
     Dates: start: 20110728
  4. AMBIEN [Concomitant]
     Active Substance: ZOLPIDEM TARTRATE
     Indication: ASTHMA
     Dosage: 10 MG, AS NEEDED
     Route: 048
     Dates: start: 20080129
  5. FLUTICASONE PROPIONATE. [Concomitant]
     Active Substance: FLUTICASONE PROPIONATE
     Dosage: 50 UG, UNK
     Route: 045
     Dates: start: 20160526
  6. CALCIUM [Concomitant]
     Active Substance: CALCIUM
     Dosage: 600 MG, DAILY
     Route: 048
     Dates: start: 20151228
  7. NORVASC [Concomitant]
     Active Substance: AMLODIPINE BESYLATE
     Indication: CHEST PAIN
     Dosage: 5 MG, DAILY (TAKE 1 AND ONE-HALF TABLETS BY MOUTH EVERY DAY)
     Route: 048
     Dates: start: 20080606
  8. AMBIEN [Concomitant]
     Active Substance: ZOLPIDEM TARTRATE
     Indication: INSOMNIA
  9. B COMPLEX [VITAMIN B COMPLEX] [Concomitant]
     Dosage: 1 DF, DAILY
     Route: 048
     Dates: start: 20151228

REACTIONS (6)
  - Asthma [Unknown]
  - Lung disorder [Unknown]
  - Malaise [Unknown]
  - Product use in unapproved indication [Unknown]
  - Off label use [Unknown]
  - Dyspnoea [Unknown]

NARRATIVE: CASE EVENT DATE: 2008
